FAERS Safety Report 8245849-2 (Version None)
Quarter: 2012Q1

REPORT INFORMATION
  Report Type: 
  Country: None (occurrence: None)
  Receive Date: 20120330
  Receipt Date: 20120316
  Transmission Date: 20120608
  Serious: Yes (Hospitalization, Other)
  Sender: FDA-Public Use
  Company Number: CH-RANBAXY-2012R1-54078

PATIENT
  Age: 25 Year
  Sex: Female

DRUGS (2)
  1. TOPIRAMATE [Suspect]
     Indication: STATUS EPILEPTICUS
     Dosage: UNK
     Route: 050
  2. TOPIRAMATE [Suspect]
     Dosage: 800MG/DAY
     Route: 050

REACTIONS (2)
  - NEPHROLITHIASIS [None]
  - SEPSIS [None]
